FAERS Safety Report 7011811-0 (Version None)
Quarter: 2010Q3

REPORT INFORMATION
  Report Type: 
  Country: None (occurrence: None)
  Receive Date: 20100923
  Receipt Date: 20090826
  Transmission Date: 20110219
  Serious: Yes (Hospitalization)
  Sender: FDA-Public Use
  Company Number: US-WYE-H10735009

PATIENT
  Sex: Female

DRUGS (2)
  1. PREMARIN [Suspect]
     Indication: HORMONE REPLACEMENT THERAPY
     Dosage: UNKNOWN
     Route: 048
     Dates: end: 20090710
  2. EFFEXOR XR [Concomitant]
     Indication: DEPRESSION
     Route: 065
     Dates: start: 20071201

REACTIONS (1)
  - CEREBROVASCULAR ACCIDENT [None]
